FAERS Safety Report 8309706-5 (Version None)
Quarter: 2012Q2

REPORT INFORMATION
  Report Type: 
  Country: None (occurrence: None)
  Receive Date: 20120425
  Receipt Date: 20120419
  Transmission Date: 20120825
  Serious: Yes (Hospitalization)
  Sender: FDA-Public Use
  Company Number: TR-ABBOTT-12P-161-0927016-00

PATIENT
  Sex: Female
  Weight: 66 kg

DRUGS (1)
  1. HUMIRA [Suspect]
     Indication: ANKYLOSING SPONDYLITIS
     Route: 058
     Dates: start: 20120214, end: 20120419

REACTIONS (4)
  - DIARRHOEA [None]
  - HAEMATOCHEZIA [None]
  - VOMITING [None]
  - NAUSEA [None]
